FAERS Safety Report 10176710 (Version 1)
Quarter: 2014Q2

REPORT INFORMATION
  Report Type: Spontaneous
  Country: US (occurrence: None)
  Receive Date: 20140515
  Receipt Date: 20140515
  Transmission Date: 20141212
  Serious: Yes (Other)
  Sender: FDA-Public Use
  Company Number: None

PATIENT
  Age: 53 Year
  Sex: Female
  Weight: 74.84 kg

DRUGS (1)
  1. FENTANYL [Suspect]
     Indication: PAIN
     Dosage: PATCH, 3 DAY, APPLIED TO A SURFACE, USUALLY THE SKIN
     Route: 061
     Dates: start: 20140417, end: 20140513

REACTIONS (4)
  - Mood swings [None]
  - Depression [None]
  - Drug ineffective [None]
  - Device malfunction [None]
